FAERS Safety Report 24919640 (Version 1)
Quarter: 2025Q1

REPORT INFORMATION
  Report Type: Report from Study
  Country: AT (occurrence: AT)
  Receive Date: 20250204
  Receipt Date: 20250204
  Transmission Date: 20250408
  Serious: No
  Sender: EXELIXIS
  Company Number: AT-IPSEN Group, Research and Development-2023-27840

PATIENT

DRUGS (1)
  1. CABOMETYX [Suspect]
     Active Substance: CABOZANTINIB S-MALATE
     Indication: Renal cell carcinoma
     Route: 065

REACTIONS (2)
  - Quality of life decreased [Unknown]
  - Off label use [Unknown]
